FAERS Safety Report 8801225 (Version 2)
Quarter: 2012Q4

REPORT INFORMATION
  Report Type: 
  Country: TR (occurrence: TR)
  Receive Date: 20120921
  Receipt Date: 20120928
  Transmission Date: 20130627
  Serious: Yes (Other)
  Sender: FDA-Public Use
  Company Number: TR-WATSON-2012-16077

PATIENT
  Age: 61 Month
  Sex: Female

DRUGS (4)
  1. FLUOXETINE HYDROCHLORIDE (UNKNOWN) [Suspect]
     Indication: OBSESSIVE-COMPULSIVE DISORDER
     Dosage: 10 mg, daily
     Route: 065
  2. FLUOXETINE HYDROCHLORIDE (UNKNOWN) [Suspect]
     Dosage: 20 mg, daily
     Route: 065
  3. FLUOXETINE HYDROCHLORIDE (UNKNOWN) [Suspect]
     Dosage: 5 mg, daily
     Route: 065
  4. RISPERIDONE [Concomitant]
     Indication: DISINHIBITION
     Dosage: 0.25-0.5 mg/ day
     Route: 065

REACTIONS (1)
  - Disinhibition [Recovered/Resolved]
